APPROVED DRUG PRODUCT: THIOTEPA
Active Ingredient: THIOTEPA
Strength: 15MG/VIAL
Dosage Form/Route: INJECTABLE;INJECTION
Application: A208242 | Product #001 | TE Code: AP
Applicant: PENN LIFE SCIENCES LLC
Approved: Jan 10, 2020 | RLD: No | RS: No | Type: RX